FAERS Safety Report 6207547-6 (Version None)
Quarter: 2009Q2

REPORT INFORMATION
  Report Type: 
  Country: None (occurrence: None)
  Receive Date: 20090528
  Receipt Date: 20090520
  Transmission Date: 20091009
  Serious: Yes (Hospitalization, Other)
  Sender: FDA-Public Use
  Company Number: PHHO2007US08221

PATIENT
  Sex: Female
  Weight: 62.4 kg

DRUGS (2)
  1. RAD 666 RAD+TAB+CMAS [Suspect]
     Indication: COLORECTAL CANCER METASTATIC
     Dosage: 70 MG / WEEK
     Route: 048
     Dates: start: 20070403, end: 20070507
  2. RAD 666 RAD+TAB+CMAS [Suspect]
     Route: 048

REACTIONS (6)
  - DIARRHOEA [None]
  - HYPOKALAEMIA [None]
  - HYPONATRAEMIA [None]
  - NAUSEA [None]
  - PYREXIA [None]
  - VOMITING [None]
